FAERS Safety Report 10090980 (Version 1)
Quarter: 2014Q2

REPORT INFORMATION
  Report Type: Spontaneous
  Country: US (occurrence: US)
  Receive Date: 20140421
  Receipt Date: 20140421
  Transmission Date: 20141212
  Serious: Yes (Other)
  Sender: FDA-Public Use
  Company Number: US-TEVA-476604USA

PATIENT
  Age: 37 Year
  Sex: Female
  Weight: 118.04 kg

DRUGS (7)
  1. PARAGARD 380A [Suspect]
     Indication: CONTRACEPTION
     Route: 015
     Dates: start: 201309, end: 20140415
  2. HYDROCHLOROTHIAZIDE [Concomitant]
     Indication: HYPERTENSION
  3. CETIRIZINE [Concomitant]
     Indication: SINUS DISORDER
  4. DULCOLAX [Concomitant]
     Indication: CONSTIPATION
  5. BUTALBITAL [Concomitant]
     Indication: MIGRAINE
  6. IBUPROFEN [Concomitant]
     Indication: MIGRAINE
  7. NORVASC [Concomitant]
     Indication: HYPERTENSION

REACTIONS (3)
  - Pregnancy with contraceptive device [Unknown]
  - Drug ineffective [Unknown]
  - Abdominal pain [Unknown]
